FAERS Safety Report 9803624 (Version 1)
Quarter: 2014Q1

REPORT INFORMATION
  Report Type: Spontaneous
  Country: HR (occurrence: None)
  Receive Date: 20140103
  Receipt Date: 20140103
  Transmission Date: 20141002
  Serious: Yes (Hospitalization)
  Sender: FDA-Public Use
  Company Number: INT_00355_2013

PATIENT
  Age: 4 Year
  Sex: Female
  Weight: 19 kg

DRUGS (8)
  1. CEFTRIAXON [Suspect]
     Indication: BACTERAEMIA
     Dosage: 750 MG, BID, INTRAVENOUS (NOT OTHERWISE SPECIFIED0?
     Route: 042
     Dates: start: 20131104, end: 20131105
  2. DEPAKINE CHRONO [Suspect]
     Indication: EPILEPSY
     Dosage: 450 MG, (FREQUENCY UNKNOWN), ORAL
     Route: 048
     Dates: start: 20131010, end: 20131113
  3. DIFETOIN [Suspect]
     Indication: EPILEPSY
     Dosage: 180 MG, FREQUENCY UNKNOWN, ORAL
     Route: 048
     Dates: start: 20131016, end: 20131114
  4. RIVOTRIL [Suspect]
     Indication: EPILEPSY
     Dosage: 0.75 MG, (FREQUENCY UNKNOWN), ORAL, TO UNKNOWN
     Dates: start: 20131018
  5. MEDROL [Suspect]
     Indication: PRODUCT USED FOR UNKNOWN INDICATION
     Dosage: 32 MG, (FREQUENCY UNKNOWN), ORAL TO UNKNOWN
     Route: 048
     Dates: start: 20131028
  6. SOLU-MEDROL [Concomitant]
  7. VIROLEX/00587301/ [Concomitant]
  8. AZIITROMICIN [Concomitant]

REACTIONS (11)
  - Eosinophil percentage increased [None]
  - Rash maculo-papular [None]
  - Aphthous stomatitis [None]
  - Genital ulceration [None]
  - Eyelid oedema [None]
  - Lip oedema [None]
  - Pyrexia [None]
  - Alanine aminotransferase increased [None]
  - Aspartate aminotransferase increased [None]
  - Gamma-glutamyltransferase increased [None]
  - Blood lactate dehydrogenase increased [None]
